FAERS Safety Report 5204710-8 (Version None)
Quarter: 2007Q1

REPORT INFORMATION
  Report Type: 
  Country: None (occurrence: None)
  Receive Date: 20070110
  Receipt Date: 20060622
  Transmission Date: 20070707
  Serious: No
  Sender: FDA-Public Use
  Company Number: US-BRISTOL-MYERS SQUIBB COMPANY-13420237

PATIENT
  Sex: Female

DRUGS (5)
  1. ABILIFY [Suspect]
     Dates: end: 20060621
  2. ZOLOFT [Concomitant]
  3. ARICEPT [Concomitant]
  4. BENICAR [Concomitant]
  5. NAMENDA [Concomitant]

REACTIONS (1)
  - MALAISE [None]
